FAERS Safety Report 7449607-8 (Version None)
Quarter: 2011Q2

REPORT INFORMATION
  Report Type: 
  Country: None (occurrence: None)
  Receive Date: 20110502
  Receipt Date: 20110421
  Transmission Date: 20111010
  Serious: No
  Sender: FDA-Public Use
  Company Number: US-BAYER-2011-035508

PATIENT
  Age: 86 Year
  Sex: Male
  Weight: 69 kg

DRUGS (3)
  1. ALEVE (CAPLET) [Suspect]
     Dosage: 1 DF, TID
     Dates: start: 20110420
  2. TEN DIFFERENT MEDICATIONS (UNCODEABLE) [Concomitant]
  3. TICE BCG [Concomitant]

REACTIONS (1)
  - FREQUENT BOWEL MOVEMENTS [None]
